FAERS Safety Report 4309603-6 (Version None)
Quarter: 2004Q1

REPORT INFORMATION
  Report Type: 
  Country: None (occurrence: None)
  Receive Date: 20040302
  Receipt Date: 20040109
  Transmission Date: 20041129
  Serious: Yes (Other)
  Sender: FDA-Public Use
  Company Number: WAES 0401USA00722

PATIENT
  Age: 75 Year
  Sex: Male

DRUGS (2)
  1. INVANZ [Suspect]
     Indication: DIABETIC FOOT
     Route: 042
     Dates: start: 20040101, end: 20040109
  2. INVANZ [Suspect]
     Indication: AMPUTATION
     Route: 042
     Dates: start: 20040101, end: 20040109

REACTIONS (5)
  - BLOOD CREATININE INCREASED [None]
  - BLOOD UREA INCREASED [None]
  - CARDIAC ARREST [None]
  - HALLUCINATION [None]
  - PNEUMONIA [None]
